FAERS Safety Report 8125189-2 (Version None)
Quarter: 2012Q1

REPORT INFORMATION
  Report Type: 
  Country: None (occurrence: None)
  Receive Date: 20120209
  Receipt Date: 20120203
  Transmission Date: 20120608
  Serious: Yes (Hospitalization)
  Sender: FDA-Public Use
  Company Number: IE-ALEXION-A201101736

PATIENT
  Sex: Female

DRUGS (5)
  1. EXJADE [Concomitant]
  2. SOLIRIS [Suspect]
     Indication: PAROXYSMAL NOCTURNAL HAEMOGLOBINURIA
     Dosage: 900 MG Q 10-12 DAYS
     Route: 042
  3. CALVEPEN [Concomitant]
     Dosage: 666 MG BD
  4. FOLIC ACID [Concomitant]
  5. NEXIUM [Concomitant]

REACTIONS (4)
  - HAEMOGLOBIN DECREASED [None]
  - FATIGUE [None]
  - PALLOR [None]
  - YAWNING [None]
